FAERS Safety Report 19171078 (Version 5)
Quarter: 2021Q4

REPORT INFORMATION
  Report Type: Report from Study
  Country: US (occurrence: US)
  Receive Date: 20210422
  Receipt Date: 20211125
  Transmission Date: 20220303
  Serious: Yes (Other)
  Sender: FDA-Public Use
  Company Number: US-ABBVIE-20K-163-3275760-00

PATIENT
  Age: 62 Year
  Sex: Female
  Weight: 68.100 kg

DRUGS (11)
  1. HUMIRA [Suspect]
     Active Substance: ADALIMUMAB
     Indication: Rheumatoid arthritis
     Dosage: CITRATE FREE
     Route: 058
     Dates: start: 2009, end: 202005
  2. HUMIRA [Suspect]
     Active Substance: ADALIMUMAB
     Indication: Ankylosing spondylitis
     Dosage: CITRATE FREE
     Route: 058
     Dates: start: 20210412, end: 202106
  3. HUMIRA [Suspect]
     Active Substance: ADALIMUMAB
     Dosage: INJECTS HUMIRA LESS FREQUENTLY THAN EVERY TWO WEEKS, CITRATE FREE
     Route: 058
     Dates: start: 2021, end: 2021
  4. HUMIRA [Suspect]
     Active Substance: ADALIMUMAB
     Dosage: CITRATE FREE
     Route: 058
     Dates: start: 2021
  5. HUMIRA [Suspect]
     Active Substance: ADALIMUMAB
     Dosage: CITRATE FREE
     Route: 058
  6. UNSPECIFIED INGREDIENT [Concomitant]
     Active Substance: UNSPECIFIED INGREDIENT
     Indication: Arthropathy
  7. LEVOTHYROXINE [Concomitant]
     Active Substance: LEVOTHYROXINE
     Indication: Thyroid disorder
  8. LEVOTHYROXINE [Concomitant]
     Active Substance: LEVOTHYROXINE
     Indication: Hormone therapy
  9. METOPROLOL [Concomitant]
     Active Substance: METOPROLOL
     Indication: Cardiac disorder
  10. METOPROLOL [Concomitant]
     Active Substance: METOPROLOL
     Indication: Hypertension
  11. TRIAMTERENE [Concomitant]
     Active Substance: TRIAMTERENE
     Indication: Diuretic therapy

REACTIONS (12)
  - Uterine prolapse [Recovered/Resolved]
  - Uterine cancer [Recovered/Resolved]
  - Intentional product misuse [Unknown]
  - Condition aggravated [Not Recovered/Not Resolved]
  - Meniscus injury [Unknown]
  - Foot deformity [Unknown]
  - Fall [Unknown]
  - Arthritis [Unknown]
  - White blood cell count increased [Unknown]
  - Pain in extremity [Not Recovered/Not Resolved]
  - Pain [Not Recovered/Not Resolved]
  - Arthralgia [Recovered/Resolved]

NARRATIVE: CASE EVENT DATE: 20200101
